FAERS Safety Report 5081351-7 (Version None)
Quarter: 2006Q3

REPORT INFORMATION
  Report Type: 
  Country: None (occurrence: None)
  Receive Date: 20060720
  Receipt Date: 20060504
  Transmission Date: 20061208
  Serious: Yes (Hospitalization, Other)
  Sender: FDA-Public Use
  Company Number: 2005141183

PATIENT
  Sex: Female

DRUGS (2)
  1. CELEBREX [Suspect]
     Indication: ILL-DEFINED DISORDER
     Dosage: ORAL
     Route: 048
     Dates: start: 19990101
  2. VIOXX [Suspect]
     Indication: MUSCULOSKELETAL DISORDER
     Dosage: 25 MG (25 MG,HS),ORAL
     Route: 048
     Dates: start: 19990101

REACTIONS (1)
  - MYOCARDIAL INFARCTION [None]
